FAERS Safety Report 8381960-3 (Version None)
Quarter: 2012Q2

REPORT INFORMATION
  Report Type: 
  Country: None (occurrence: None)
  Receive Date: 20120522
  Receipt Date: 20120522
  Transmission Date: 20120825
  Serious: Yes (Death)
  Sender: FDA-Public Use
  Company Number: None

PATIENT
  Age: 82 Year
  Sex: Female
  Weight: 49.8957 kg

DRUGS (1)
  1. VALACYCLOVIR 1GM RANBAXY [Suspect]
     Dosage: 1 GM TWICE DAILY PO
     Route: 048
     Dates: start: 20120325, end: 20120331

REACTIONS (1)
  - CEREBRAL HAEMORRHAGE [None]
